FAERS Safety Report 16796795 (Version 1)
Quarter: 2019Q3

REPORT INFORMATION
  Report Type: Spontaneous
  Country: FR (occurrence: FR)
  Receive Date: 20190911
  Receipt Date: 20190911
  Transmission Date: 20191005
  Serious: Yes (Hospitalization)
  Sender: FDA-Public Use
  Company Number: FR-CANTON LABORATORIES, LLC-2074352

PATIENT
  Age: 19 Year
  Sex: Female

DRUGS (5)
  1. LUMIRELAX (METHOCARBAMOL) [Suspect]
     Active Substance: METHOCARBAMOL
     Route: 048
     Dates: start: 20190816, end: 20190816
  2. PARACETAMOL [Suspect]
     Active Substance: ACETAMINOPHEN
     Route: 048
     Dates: start: 20190731, end: 20190816
  3. CODOLIPRANE [Suspect]
     Active Substance: ACETAMINOPHEN\CODEINE PHOSPHATE
     Route: 065
     Dates: start: 20190816, end: 20190816
  4. NAPROSYN [Suspect]
     Active Substance: NAPROXEN
     Route: 048
     Dates: start: 20190731, end: 20190816
  5. ALPRAZOLAM. [Suspect]
     Active Substance: ALPRAZOLAM
     Route: 048
     Dates: start: 20190731, end: 20190816

REACTIONS (1)
  - Pancreatitis acute [Recovering/Resolving]

NARRATIVE: CASE EVENT DATE: 20190816
